FAERS Safety Report 9624421 (Version 1)
Quarter: 2013Q4

REPORT INFORMATION
  Report Type: Spontaneous
  Country: DE (occurrence: DE)
  Receive Date: 20131015
  Receipt Date: 20131015
  Transmission Date: 20140711
  Serious: Yes (Congenital Anomaly)
  Sender: FDA-Public Use
  Company Number: DE-GLAXOSMITHKLINE-D0081334A

PATIENT
  Sex: Male
  Weight: 3.9 kg

DRUGS (1)
  1. LAMOTRIGINE [Suspect]
     Indication: EPILEPSY
     Route: 064

REACTIONS (2)
  - Polydactyly [Recovered/Resolved with Sequelae]
  - Foetal exposure during pregnancy [Unknown]
